FAERS Safety Report 8850480 (Version 1)
Quarter: 2012Q4

REPORT INFORMATION
  Report Type: 
  Country: IN (occurrence: IN)
  Receive Date: 20121019
  Receipt Date: 20121019
  Transmission Date: 20130627
  Serious: Yes (Death, Other)
  Sender: FDA-Public Use
  Company Number: PHHY2012IN092038

PATIENT
  Age: 46 Year
  Sex: Female

DRUGS (4)
  1. IMATINIB [Suspect]
     Indication: CHRONIC EOSINOPHILIC LEUKAEMIA
     Dosage: 100 mg, daily
  2. IMATINIB [Suspect]
     Dosage: 400 mg, daily
  3. PREDNISOLONE [Suspect]
     Indication: EOSINOPHILIA
     Dosage: 1 mg/kg, UNK
  4. HYDROXYUREA [Suspect]
     Indication: EOSINOPHILIA

REACTIONS (6)
  - Death [Fatal]
  - Neoplasm progression [Unknown]
  - Malignant neoplasm progression [Unknown]
  - Pancytopenia [Unknown]
  - General physical health deterioration [Unknown]
  - Leukocytosis [Unknown]
